FAERS Safety Report 22241480 (Version 2)
Quarter: 2023Q2

REPORT INFORMATION
  Report Type: Report from Study
  Country: AU (occurrence: AU)
  Receive Date: 20230421
  Receipt Date: 20230516
  Transmission Date: 20230721
  Serious: Yes (Hospitalization, Other)
  Sender: FDA-Public Use
  Company Number: AU-002147023-NVSC2021AU096806

PATIENT
  Age: 67 Year
  Sex: Male
  Weight: 74 kg

DRUGS (29)
  1. KYMRIAH [Suspect]
     Active Substance: TISAGENLECLEUCEL
     Indication: Mantle cell lymphoma
     Dosage: 3.9X10E8, DAY 7 POST INFUSION
     Route: 042
     Dates: start: 20210421, end: 20210421
  2. IBRUTINIB [Suspect]
     Active Substance: IBRUTINIB
     Indication: Mantle cell lymphoma
     Dosage: UNK
     Route: 048
     Dates: start: 202006
  3. IBRUTINIB [Suspect]
     Active Substance: IBRUTINIB
     Dosage: 560 MG
     Route: 048
     Dates: start: 20210125
  4. FLUDARABINE [Suspect]
     Active Substance: FLUDARABINE PHOSPHATE
     Indication: Product used for unknown indication
     Dosage: 44 MG, QD FOR 3 DAYS
     Route: 065
     Dates: start: 20210415
  5. CYCLOPHOSPHAMIDE [Suspect]
     Active Substance: CYCLOPHOSPHAMIDE
     Indication: Product used for unknown indication
     Dosage: 440 MG
     Route: 065
     Dates: start: 20210415
  6. METOCLOPRAMIDE HYDROCHLORIDE [Concomitant]
     Active Substance: METOCLOPRAMIDE HYDROCHLORIDE
     Indication: Nausea
     Dosage: 10 MG, TID
     Route: 042
     Dates: start: 20210415, end: 20210428
  7. METOCLOPRAMIDE HYDROCHLORIDE [Concomitant]
     Active Substance: METOCLOPRAMIDE HYDROCHLORIDE
     Indication: Vomiting
  8. ALLOPURINOL [Concomitant]
     Active Substance: ALLOPURINOL
     Indication: Product used for unknown indication
     Dosage: 300 MG, IN THE MORNING
     Route: 048
     Dates: start: 20210415, end: 20210428
  9. SULFAMETHOXAZOLE AND TRIMETHOPRIM [Concomitant]
     Active Substance: SULFAMETHOXAZOLE\TRIMETHOPRIM
     Indication: Prophylaxis
     Dosage: 1 TABLET, TWICE DAILY, 800 MG SULFAMETHOXAZOLE PLUS TRIMETHOPRIM 160 MG
     Route: 048
     Dates: start: 20210415, end: 20210426
  10. VALACYCLOVIR HYDROCHLORIDE [Concomitant]
     Active Substance: VALACYCLOVIR HYDROCHLORIDE
     Indication: Antiviral prophylaxis
     Dosage: 500 MG
     Route: 048
     Dates: start: 202006
  11. VALACYCLOVIR HYDROCHLORIDE [Concomitant]
     Active Substance: VALACYCLOVIR HYDROCHLORIDE
     Dosage: 500 MG, QD (TABLET)
     Route: 048
     Dates: start: 20210415
  12. CEFAZOLIN [Concomitant]
     Active Substance: CEFAZOLIN
     Indication: Product used for unknown indication
     Dosage: 2 G, Q8H
     Route: 042
     Dates: start: 20210416, end: 20210428
  13. LEVETIRACETAM [Concomitant]
     Active Substance: LEVETIRACETAM
     Indication: Product used for unknown indication
     Dosage: 250 MG, BID
     Route: 048
     Dates: start: 20210419, end: 20210428
  14. PIPERACILLIN AND TAZOBACTAM [Concomitant]
     Active Substance: PIPERACILLIN SODIUM\TAZOBACTAM SODIUM
     Indication: Product used for unknown indication
     Dosage: 4.5 G, Q6H, PIPERACILLIN 4G PLUS TAZOBACTAM 0.5 G
     Route: 042
     Dates: start: 20210422, end: 20210428
  15. FLUCONAZOLE [Concomitant]
     Active Substance: FLUCONAZOLE
     Indication: Product used for unknown indication
     Dosage: 200 MG, QD
     Route: 048
     Dates: start: 20210422, end: 20210428
  16. CALCIUM CARBONATE [Concomitant]
     Active Substance: CALCIUM CARBONATE
     Indication: Product used for unknown indication
     Dosage: 1.5 G, TID
     Route: 048
     Dates: start: 20210427, end: 20210428
  17. MAGNESIUM ASPARTATE [Concomitant]
     Active Substance: MAGNESIUM ASPARTATE
     Indication: Product used for unknown indication
     Dosage: 1000 MG, BID
     Route: 048
     Dates: start: 20210427, end: 20210428
  18. PHYTONADIONE [Concomitant]
     Active Substance: PHYTONADIONE
     Indication: Product used for unknown indication
     Dosage: 10 MG, QD
     Route: 042
     Dates: start: 20210427, end: 20210427
  19. CALCITRIOL [Concomitant]
     Active Substance: CALCITRIOL
     Indication: Product used for unknown indication
     Dosage: 0.25 MCG, BID
     Route: 048
     Dates: start: 20210427, end: 20210428
  20. LOPERAMIDE [Concomitant]
     Active Substance: LOPERAMIDE
     Indication: Antidiarrhoeal supportive care
     Dosage: 2 TO 4 MG, Q2 HOURS PRN, UP TO 16 MG PER DAY
     Route: 048
     Dates: start: 20210425, end: 20210428
  21. ACETAMINOPHEN [Concomitant]
     Active Substance: ACETAMINOPHEN
     Indication: Pain
     Dosage: 1000 MG
     Route: 048
     Dates: start: 20210201
  22. ACETAMINOPHEN [Concomitant]
     Active Substance: ACETAMINOPHEN
     Indication: Pyrexia
     Dosage: 1000 MG, Q4H, PRN, UPTO 4000 MG PER DAY
     Route: 048
     Dates: start: 20210422, end: 20210428
  23. ACETAMINOPHEN [Concomitant]
     Active Substance: ACETAMINOPHEN
     Dosage: UNK
     Route: 048
     Dates: start: 20220201
  24. ONDANSETRON [Concomitant]
     Active Substance: ONDANSETRON
     Indication: Nausea
     Dosage: 8 MG, Q12H, PRN
     Route: 042
     Dates: start: 20210421, end: 20210428
  25. ONDANSETRON [Concomitant]
     Active Substance: ONDANSETRON
     Indication: Vomiting
  26. TEMAZEPAM [Concomitant]
     Active Substance: TEMAZEPAM
     Indication: Insomnia
     Dosage: 10 MG
     Route: 048
     Dates: start: 202006
  27. PRAZOSIN [Concomitant]
     Active Substance: PRAZOSIN
     Indication: Prostatomegaly
     Dosage: 0.5 MG
     Route: 048
     Dates: start: 20210216
  28. TOCILIZUMAB [Concomitant]
     Active Substance: TOCILIZUMAB
     Indication: Product used for unknown indication
     Dosage: 550 MG, Q8H, PRN UPTO 4 DOSES PER 30 DAYS
     Route: 042
     Dates: start: 20210420, end: 20210423
  29. CYCLIZINE [Concomitant]
     Active Substance: CYCLIZINE
     Indication: Prophylaxis of nausea and vomiting
     Dosage: 25 TO 50 MG Q8H PRN, UPTO 3 DOSES PER DAY
     Route: 042
     Dates: start: 20210414

REACTIONS (3)
  - COVID-19 [Recovered/Resolved]
  - Pneumonia [Recovered/Resolved]
  - Disseminated intravascular coagulation [Recovered/Resolved]

NARRATIVE: CASE EVENT DATE: 20210428
